FAERS Safety Report 8217435-1 (Version None)
Quarter: 2012Q1

REPORT INFORMATION
  Report Type: 
  Country: None (occurrence: None)
  Receive Date: 20120315
  Receipt Date: 20120229
  Transmission Date: 20120608
  Serious: Yes (Hospitalization)
  Sender: FDA-Public Use
  Company Number: CRC-12-084

PATIENT
  Age: 29 Year
  Sex: Male

DRUGS (1)
  1. METFORMIN HCL [Suspect]
     Indication: DIABETES MELLITUS
     Dosage: 850MG 3X/DAY; ORALLY
     Route: 048

REACTIONS (1)
  - COOMBS NEGATIVE HAEMOLYTIC ANAEMIA [None]
